FAERS Safety Report 8100733 (Version 3)
Quarter: 2012Q4

REPORT INFORMATION
  Report Type: Report from Study
  Country: US (occurrence: US)
  Receive Date: 20110822
  Receipt Date: 20121127
  Transmission Date: 20130627
  Serious: Yes (Hospitalization)
  Sender: FDA-Public Use
  Company Number: PHHO2011US13910

PATIENT
  Age: 68 Year
  Sex: Male
  Weight: 106.58 kg

DRUGS (12)
  1. AFINITOR [Suspect]
     Indication: PROSTATE CANCER
     Dosage: 2.5 mg, UNK
     Route: 048
     Dates: start: 20110714, end: 20110811
  2. AFINITOR [Suspect]
     Dosage: 2.5 mg, UNK
     Route: 048
     Dates: start: 20110815
  3. DOCETAXEL [Suspect]
     Indication: PROSTATE CANCER
     Dosage: 15 mg/kg, UNK
     Dates: start: 20110713, end: 20110803
  4. AVASTIN [Suspect]
  5. PEPTO-BISMOL [Concomitant]
  6. DECADRON [Concomitant]
  7. COMPAZINE [Concomitant]
     Dosage: UNK
  8. ZOFRAN [Concomitant]
  9. MESALAMINE [Concomitant]
  10. AMBIEN [Concomitant]
  11. METOPROLOL [Concomitant]
  12. ARANESP [Concomitant]

REACTIONS (2)
  - Febrile neutropenia [Recovering/Resolving]
  - Anaemia [Recovering/Resolving]
